FAERS Safety Report 11200322 (Version 2)
Quarter: 2015Q2

REPORT INFORMATION
  Report Type: Report from Study
  Country: NZ (occurrence: NZ)
  Receive Date: 20150618
  Receipt Date: 20150625
  Transmission Date: 20150821
  Serious: Yes (Other)
  Sender: FDA-Public Use
  Company Number: NZ-ABBVIE-15K-118-1407184-00

PATIENT
  Age: 24 Year
  Sex: Male
  Weight: 72.5 kg

DRUGS (4)
  1. HUMIRA [Suspect]
     Active Substance: ADALIMUMAB
     Indication: CROHN^S DISEASE
     Route: 058
     Dates: start: 2012
  2. PENTASA [Concomitant]
     Active Substance: MESALAMINE
     Indication: PRODUCT USED FOR UNKNOWN INDICATION
     Dosage: FOUR TABLETS BD
  3. AZATHIOPRINE. [Suspect]
     Active Substance: AZATHIOPRINE
     Indication: PRODUCT USED FOR UNKNOWN INDICATION
     Dosage: 50 MG (MILLIGRAM) AND 100 MG ALTERNATE DAYS
     Route: 065
     Dates: start: 2014
  4. LORATADINE. [Concomitant]
     Active Substance: LORATADINE
     Indication: SEASONAL ALLERGY
     Dosage: SUMMER TIME OR SPRING

REACTIONS (13)
  - Intestinal fistula [Unknown]
  - Ileostomy closure [Unknown]
  - Pilonidal cyst [Unknown]
  - Stoma site discharge [Unknown]
  - Fistula [Unknown]
  - Anastomotic ulcer [Unknown]
  - Crohn^s disease [Unknown]
  - Drug ineffective [Unknown]
  - Stoma site induration [Unknown]
  - Drug effect incomplete [Unknown]
  - Condition aggravated [Unknown]
  - Bone marrow failure [Unknown]
  - Intestinal anastomosis [Unknown]

NARRATIVE: CASE EVENT DATE: 201301
